FAERS Safety Report 9882323 (Version 1)
Quarter: 2014Q1

REPORT INFORMATION
  Report Type: Spontaneous
  Country: US (occurrence: US)
  Receive Date: 20140207
  Receipt Date: 20140207
  Transmission Date: 20141002
  Serious: Yes (Death, Hospitalization)
  Sender: FDA-Public Use
  Company Number: US-GLAXOSMITHKLINE-A1059056A

PATIENT
  Age: 82 Year
  Sex: Male

DRUGS (12)
  1. ADVAIR [Suspect]
     Indication: CHRONIC OBSTRUCTIVE PULMONARY DISEASE
     Dosage: 1PUFF TWICE PER DAY
     Route: 055
     Dates: start: 2009
  2. XELODA [Suspect]
     Indication: PRODUCT USED FOR UNKNOWN INDICATION
  3. SPIRIVA [Concomitant]
  4. ALBUTEROL NEBS [Concomitant]
  5. SPRYCEL [Concomitant]
  6. TAMSULOSIN [Concomitant]
  7. ZOLOFT [Concomitant]
  8. CLONOPIN [Concomitant]
  9. IRON [Concomitant]
  10. VITAMIN D [Concomitant]
  11. PLAVIX [Concomitant]
  12. PRAVASTATIN [Concomitant]

REACTIONS (6)
  - Death [Fatal]
  - Myocardial infarction [Unknown]
  - Stent placement [Unknown]
  - Hospice care [Unknown]
  - Rehabilitation therapy [Unknown]
  - Respiratory disorder [Unknown]
